FAERS Safety Report 9393140 (Version 2)
Quarter: 2013Q3

REPORT INFORMATION
  Report Type: Spontaneous
  Country: IT (occurrence: IT)
  Receive Date: 20130710
  Receipt Date: 20130927
  Transmission Date: 20140515
  Serious: Yes (Other)
  Sender: FDA-Public Use
  Company Number: IT-JNJFOC-20130702371

PATIENT
  Age: 60 Year
  Sex: Female
  Weight: 45 kg

DRUGS (9)
  1. REMICADE [Suspect]
     Indication: CROHN^S DISEASE
     Route: 042
     Dates: start: 20120806
  2. REMICADE [Suspect]
     Indication: CROHN^S DISEASE
     Dosage: SECOND INFUSION
     Route: 042
     Dates: start: 20120903, end: 20120903
  3. NEXIUM [Concomitant]
     Indication: DYSPEPSIA
     Route: 065
     Dates: start: 20110223
  4. QUESTRAN [Concomitant]
     Route: 048
  5. CLEXANE [Concomitant]
     Route: 065
  6. MAG 2 [Concomitant]
     Dosage: 1.5MG/10ML
     Route: 048
  7. IMODIUM [Concomitant]
     Indication: DIARRHOEA
     Dosage: 4-6 MG
     Route: 065
     Dates: start: 20120217
  8. PROTHERSOD [Concomitant]
     Indication: MEDICAL DIET
     Route: 065
  9. METHYLPREDNISOLONE [Concomitant]
     Indication: PREMEDICATION
     Route: 042
     Dates: start: 20120903

REACTIONS (5)
  - Laryngospasm [Recovered/Resolved]
  - Palpitations [Recovered/Resolved]
  - Dyspnoea [Recovered/Resolved]
  - Infusion related reaction [Recovered/Resolved]
  - Chest pain [Recovered/Resolved]
